FAERS Safety Report 11324704 (Version 1)
Quarter: 2015Q3

REPORT INFORMATION
  Report Type: Spontaneous
  Country: JP (occurrence: JP)
  Receive Date: 20150730
  Receipt Date: 20150730
  Transmission Date: 20151125
  Serious: Yes (Other)
  Sender: FDA-Public Use
  Company Number: JP-FRESENIUS KABI-FK201503562

PATIENT
  Age: 45 Year
  Sex: Male

DRUGS (1)
  1. THIAMINE (MANUFACTURER UNKNOWN) [Suspect]
     Active Substance: THIAMINE
     Indication: MARCHIAFAVA-BIGNAMI DISEASE
     Route: 065

REACTIONS (2)
  - Encephalopathy [Recovered/Resolved]
  - Nicotinic acid deficiency [Recovered/Resolved]
